FAERS Safety Report 7887593-7 (Version None)
Quarter: 2011Q4

REPORT INFORMATION
  Report Type: 
  Country: None (occurrence: None)
  Receive Date: 20111103
  Receipt Date: 20111025
  Transmission Date: 20120403
  Serious: No
  Sender: FDA-Public Use
  Company Number: US-BIOGENIDEC-2011BI040776

PATIENT
  Sex: Female

DRUGS (1)
  1. TYSABRI [Suspect]
     Indication: MULTIPLE SCLEROSIS
     Route: 042

REACTIONS (6)
  - FALL [None]
  - BALANCE DISORDER [None]
  - DRUG DEPENDENCE [None]
  - LIMB INJURY [None]
  - ASTHENIA [None]
  - FEELING ABNORMAL [None]
